APPROVED DRUG PRODUCT: ZYDONE
Active Ingredient: ACETAMINOPHEN; HYDROCODONE BITARTRATE
Strength: 400MG;7.5MG
Dosage Form/Route: TABLET;ORAL
Application: A040288 | Product #002
Applicant: VINTAGE PHARMACEUTICALS LLC
Approved: Nov 27, 1998 | RLD: No | RS: No | Type: DISCN